FAERS Safety Report 15852702 (Version 2)
Quarter: 2019Q1

REPORT INFORMATION
  Report Type: Report from Study
  Country: HN (occurrence: HN)
  Receive Date: 20190122
  Receipt Date: 20190128
  Transmission Date: 20190417
  Serious: Yes (Other)
  Sender: FDA-Public Use
  Company Number: PHHY2019HN013502

PATIENT
  Age: 30 Year
  Sex: Male

DRUGS (1)
  1. EXFORGE [Suspect]
     Active Substance: AMLODIPINE BESYLATE\VALSARTAN
     Indication: PRODUCT USED FOR UNKNOWN INDICATION
     Dosage: (AMLODIPINE 10 MG, VALSARTAN 320 MG)
     Route: 065
     Dates: start: 201306

REACTIONS (4)
  - Fibula fracture [Unknown]
  - Road traffic accident [Unknown]
  - Limb discomfort [Not Recovered/Not Resolved]
  - Tibia fracture [Unknown]
